FAERS Safety Report 6182162-1 (Version None)
Quarter: 2009Q2

REPORT INFORMATION
  Report Type: 
  Country: None (occurrence: None)
  Receive Date: 20090505
  Receipt Date: 20090505
  Transmission Date: 20091009
  Serious: Yes (Other)
  Sender: FDA-Public Use
  Company Number: None

PATIENT
  Age: 74 Year
  Sex: Female
  Weight: 62.1428 kg

DRUGS (1)
  1. BD LACTINEX DOES NOT SAY [Suspect]
     Indication: DISBACTERIOSIS
     Dosage: 4 TABLETS 3 OR 4 TIMES A DAY PO
     Route: 048
     Dates: start: 20080613, end: 20080615

REACTIONS (4)
  - DYSPNOEA [None]
  - LIP SWELLING [None]
  - OEDEMA MOUTH [None]
  - PRODUCT LABEL ISSUE [None]
